FAERS Safety Report 5232164-4 (Version None)
Quarter: 2007Q1

REPORT INFORMATION
  Report Type: 
  Country: None (occurrence: None)
  Receive Date: 20061205
  Receipt Date: 20060731
  Transmission Date: 20070707
  Serious: No
  Sender: FDA-Public Use
  Company Number: PHEH2006US09823

PATIENT
  Age: 55 Year
  Sex: Male

DRUGS (1)
  1. EXJADE [Suspect]
     Indication: APLASTIC ANAEMIA
     Dosage: 20 MG/KG,QD,ORAL
     Route: 048

REACTIONS (1)
  - BLOOD BILIRUBIN INCREASED [None]
